FAERS Safety Report 4575381-9 (Version None)
Quarter: 2005Q1

REPORT INFORMATION
  Report Type: 
  Country: None (occurrence: None)
  Receive Date: 20050128
  Receipt Date: 20050128
  Transmission Date: 20050727
  Serious: Yes (Other)
  Sender: FDA-Public Use
  Company Number: None

PATIENT
  Age: 45 Year
  Sex: Female
  Weight: 117.028 kg

DRUGS (1)
  1. CLOZARIL [Suspect]
     Indication: SCHIZOAFFECTIVE DISORDER
     Dosage: PO 25 MG UP TO 5 X DAY

REACTIONS (2)
  - DYSPHONIA [None]
  - SELF-INJURIOUS IDEATION [None]
